FAERS Safety Report 11892856 (Version 1)
Quarter: 2016Q1

REPORT INFORMATION
  Report Type: Spontaneous
  Country: US (occurrence: US)
  Receive Date: 20160106
  Receipt Date: 20160106
  Transmission Date: 20160526
  Serious: Yes (Other)
  Sender: FDA-Public Use
  Company Number: US-PURDUE-USA-2016-0128217

PATIENT
  Sex: Male

DRUGS (4)
  1. BUTRANS [Suspect]
     Active Substance: BUPRENORPHINE
     Indication: INTERVERTEBRAL DISC DEGENERATION
     Dosage: 20 MCG/HR, WEEKLY
     Route: 062
     Dates: start: 201503
  2. CYMBALTA [Concomitant]
     Active Substance: DULOXETINE HYDROCHLORIDE
     Indication: PRODUCT USED FOR UNKNOWN INDICATION
     Dosage: 90 MG, UNK
     Route: 048
  3. DILAUDID [Suspect]
     Active Substance: HYDROMORPHONE HYDROCHLORIDE
     Indication: INTERVERTEBRAL DISC DEGENERATION
     Dosage: 8 MG, 5-6 TIMES DAILY
     Route: 048
  4. DILAUDID [Suspect]
     Active Substance: HYDROMORPHONE HYDROCHLORIDE
     Dosage: 160 MG, 5-6 TABLETS
     Route: 048

REACTIONS (5)
  - Pain [Unknown]
  - Hypoaesthesia [Unknown]
  - Drug effect decreased [Unknown]
  - Peripheral coldness [Unknown]
  - Suicidal ideation [Unknown]
